FAERS Safety Report 5260890-X (Version None)
Quarter: 2007Q1

REPORT INFORMATION
  Report Type: 
  Country: None (occurrence: None)
  Receive Date: 20070309
  Receipt Date: 20070226
  Transmission Date: 20070707
  Serious: Yes (Other)
  Sender: FDA-Public Use
  Company Number: SE-ELI_LILLY_AND_COMPANY-SE200702005647

PATIENT
  Age: 65 Year
  Sex: Male

DRUGS (2)
  1. ZYPREXA [Suspect]
     Dosage: 5 MG, DAILY (1/D)
     Dates: start: 20061103
  2. TRILAFON [Concomitant]
     Dosage: 0.5 ML, EVERY SECOND WEEK (108MG/ML)

REACTIONS (4)
  - EMOTIONAL DISTRESS [None]
  - FATIGUE [None]
  - RECTAL NEOPLASM [None]
  - WEIGHT INCREASED [None]
